FAERS Safety Report 4737134-8 (Version None)
Quarter: 2005Q3

REPORT INFORMATION
  Report Type: 
  Country: None (occurrence: None)
  Receive Date: 20050804
  Receipt Date: 20050726
  Transmission Date: 20060218
  Serious: Yes (Hospitalization)
  Sender: FDA-Public Use
  Company Number: 2005-04-0285

PATIENT
  Age: 59 Year
  Sex: Male
  Weight: 77 kg

DRUGS (5)
  1. CELESTAMINE TAB [Suspect]
     Indication: RHINITIS ALLERGIC
     Dosage: 3 TABS-UNK+ ORAL
     Route: 048
     Dates: start: 20040801, end: 20040101
  2. CELESTAMINE TAB [Suspect]
     Indication: RHINITIS ALLERGIC
     Dosage: 3 TABS-UNK+ ORAL
     Route: 048
     Dates: start: 20040101, end: 20050301
  3. CELESTAMINE TAB [Suspect]
     Indication: RHINITIS ALLERGIC
     Dosage: 3 TABS-UNK+ ORAL
     Route: 048
     Dates: start: 20040801, end: 20050301
  4. CONIEL (BENIDIPINE HCL) TABLETS [Concomitant]
  5. BENZBROMARONE TABLETS [Concomitant]

REACTIONS (4)
  - EOSINOPHILIC PNEUMONIA [None]
  - INTERSTITIAL LUNG DISEASE [None]
  - PNEUMONIA [None]
  - SWELLING FACE [None]
